FAERS Safety Report 9526182 (Version 1)
Quarter: 2013Q3

REPORT INFORMATION
  Report Type: Report from Study
  Country: US (occurrence: US)
  Receive Date: 20130916
  Receipt Date: 20130916
  Transmission Date: 20140515
  Serious: Yes (Hospitalization, Other)
  Sender: FDA-Public Use
  Company Number: US-US-EMD SERONO, INC.-7236528

PATIENT
  Sex: Female

DRUGS (2)
  1. REBIF [Suspect]
     Indication: MULTIPLE SCLEROSIS
     Route: 058
     Dates: start: 20040813
  2. DETROL [Concomitant]
     Indication: MICTURITION URGENCY

REACTIONS (11)
  - Pseudomonas infection [Recovering/Resolving]
  - Streptococcal infection [Recovering/Resolving]
  - Red blood cell count decreased [Unknown]
  - Injection site abscess [Recovering/Resolving]
  - Cystitis [Unknown]
  - Drug hypersensitivity [Unknown]
  - White blood cell count decreased [Unknown]
  - Injection site erythema [Unknown]
  - Injection site warmth [Not Recovered/Not Resolved]
  - Injection site swelling [Not Recovered/Not Resolved]
  - Cellulitis [Recovering/Resolving]
